FAERS Safety Report 8420461-0 (Version None)
Quarter: 2012Q2

REPORT INFORMATION
  Report Type: 
  Country: None (occurrence: None)
  Receive Date: 20120608
  Receipt Date: 20120530
  Transmission Date: 20120825
  Serious: Yes (Hospitalization, Other)
  Sender: FDA-Public Use
  Company Number: US-ASTRAZENECA-2011SE32192

PATIENT
  Age: 65 Year
  Sex: Female

DRUGS (6)
  1. OMEPRAZOLE [Concomitant]
     Indication: GASTROOESOPHAGEAL REFLUX DISEASE
     Route: 065
  2. NEXIUM [Suspect]
     Route: 048
     Dates: start: 20071101, end: 20110101
  3. LEVOTHYRODINE [Concomitant]
     Indication: HYPERTENSION
     Route: 065
  4. ENALOPRIL [Concomitant]
     Route: 065
  5. NEXIUM [Suspect]
     Indication: GASTROOESOPHAGEAL REFLUX DISEASE
     Route: 048
  6. HYDROCHLOROTHIAZDE TAB [Concomitant]
     Indication: HYPERTENSION
     Route: 065

REACTIONS (5)
  - ASTHMA [None]
  - DEPRESSION [None]
  - OSTEOPOROSIS [None]
  - MULTIPLE FRACTURES [None]
  - BONE DENSITY DECREASED [None]
